FAERS Safety Report 7384467-5 (Version None)
Quarter: 2011Q1

REPORT INFORMATION
  Report Type: 
  Country: None (occurrence: None)
  Receive Date: 20110322
  Receipt Date: 20110310
  Transmission Date: 20110831
  Serious: Yes (Hospitalization, Other)
  Sender: FDA-Public Use
  Company Number: 2011SP012096

PATIENT
  Age: 70 Year
  Sex: Male
  Weight: 77.2 kg

DRUGS (1)
  1. TEMODAR [Suspect]
     Indication: MALIGNANT MELANOMA
     Dosage: 561.6 MG, ONCE, IART
     Dates: start: 20110215

REACTIONS (3)
  - LYMPHOEDEMA [None]
  - BLOOD CREATINE PHOSPHOKINASE INCREASED [None]
  - DERMATITIS EXFOLIATIVE [None]
